FAERS Safety Report 8911224 (Version 1)
Quarter: 2012Q4

REPORT INFORMATION
  Report Type: 
  Country: US (occurrence: US)
  Receive Date: 20121115
  Receipt Date: 20121115
  Transmission Date: 20130627
  Serious: No
  Sender: FDA-Public Use
  Company Number: US-AMGEN-USASP2012022954

PATIENT

DRUGS (1)
  1. VECTIBIX [Suspect]
     Indication: GASTRIC CANCER
     Dosage: UNK

REACTIONS (1)
  - Diarrhoea [Unknown]
